FAERS Safety Report 4931548-9 (Version None)
Quarter: 2006Q1

REPORT INFORMATION
  Report Type: 
  Country: None (occurrence: None)
  Receive Date: 20060303
  Receipt Date: 20060220
  Transmission Date: 20060701
  Serious: Yes (Hospitalization, Other)
  Sender: FDA-Public Use
  Company Number: FR-BRISTOL-MYERS SQUIBB COMPANY-13292107

PATIENT
  Age: 46 Year
  Sex: Male

DRUGS (2)
  1. COUMADIN [Suspect]
     Route: 048
     Dates: start: 20051201, end: 20051213
  2. HEPARIN [Concomitant]
     Route: 051

REACTIONS (3)
  - HAEMORRHAGE [None]
  - HYPERTENSIVE CRISIS [None]
  - OVERDOSE [None]
